FAERS Safety Report 5573672-6 (Version None)
Quarter: 2007Q4

REPORT INFORMATION
  Report Type: 
  Country: None (occurrence: None)
  Receive Date: 20071226
  Receipt Date: 20071214
  Transmission Date: 20080405
  Serious: Yes (Hospitalization)
  Sender: FDA-Public Use
  Company Number: US-AMGEN-US242820

PATIENT
  Sex: Male

DRUGS (9)
  1. PANITUMUMAB [Suspect]
     Indication: COLORECTAL CANCER
     Route: 042
     Dates: start: 20070427
  2. FOLINIC ACID [Suspect]
     Route: 065
  3. FLUOROURACIL [Suspect]
     Route: 065
  4. IRINOTECAN HCL [Suspect]
     Route: 065
  5. INSULIN [Concomitant]
     Route: 058
  6. LOPRESSOR [Concomitant]
     Route: 048
  7. AMBIEN [Concomitant]
     Route: 048
  8. ASPIRIN [Concomitant]
     Route: 065
  9. EZETIMIBE/SIMVASTATIN [Concomitant]
     Route: 065

REACTIONS (4)
  - DEHYDRATION [None]
  - DYSPHAGIA [None]
  - MUCOSAL INFLAMMATION [None]
  - OESOPHAGEAL PAIN [None]
